FAERS Safety Report 22953083 (Version 2)
Quarter: 2023Q4

REPORT INFORMATION
  Report Type: Spontaneous
  Country: CO (occurrence: CO)
  Receive Date: 20230918
  Receipt Date: 20231117
  Transmission Date: 20240109
  Serious: Yes (Life-Threatening, Hospitalization, Other)
  Sender: FDA-Public Use
  Company Number: CO-MLMSERVICE-20230905-4528802-1

PATIENT
  Age: 64 Year
  Sex: Female

DRUGS (8)
  1. OXALIPLATIN [Suspect]
     Active Substance: OXALIPLATIN
     Indication: Adenocarcinoma gastric
     Dosage: DURING 6 CYCLES (EVERY 14 DAYS).
     Dates: start: 202201, end: 202204
  2. DOCETAXEL [Concomitant]
     Active Substance: DOCETAXEL\DOCETAXEL ANHYDROUS
     Indication: Adenocarcinoma gastric
     Dosage: 5 CYCLES EVERY 14 DAYS.
     Dates: start: 202201, end: 202204
  3. LEUCOVORIN [Concomitant]
     Active Substance: LEUCOVORIN\LEUCOVORIN CALCIUM
     Indication: Metastases to lung
     Dosage: 5 CYCLES EVERY 14 DAYS.
     Dates: start: 202201, end: 202204
  4. FLUOROURACIL [Concomitant]
     Active Substance: FLUOROURACIL
     Indication: Adenocarcinoma gastric
     Dosage: 5 CYCLES EVERY 14 DAYS.
     Dates: start: 202201, end: 202204
  5. DOCETAXEL [Concomitant]
     Active Substance: DOCETAXEL\DOCETAXEL ANHYDROUS
     Indication: Metastases to abdominal wall
     Dosage: 5 CYCLES EVERY 14 DAYS.
     Dates: start: 202201, end: 202204
  6. LEUCOVORIN [Concomitant]
     Active Substance: LEUCOVORIN\LEUCOVORIN CALCIUM
     Indication: Metastases to abdominal wall
     Dosage: 5 CYCLES EVERY 14 DAYS.
     Dates: start: 202201, end: 202204
  7. OXALIPLATIN [Suspect]
     Active Substance: OXALIPLATIN
     Indication: Metastases to lung
     Dosage: DURING 6 CYCLES (EVERY 14 DAYS).
     Dates: start: 202201, end: 202204
  8. FLUOROURACIL [Concomitant]
     Active Substance: FLUOROURACIL
     Indication: Metastases to lung
     Dosage: 5 CYCLES EVERY 14 DAYS.
     Dates: start: 202201, end: 202204

REACTIONS (1)
  - Stress cardiomyopathy [Recovered/Resolved]

NARRATIVE: CASE EVENT DATE: 20220401
